FAERS Safety Report 7459378-7 (Version None)
Quarter: 2011Q2

REPORT INFORMATION
  Report Type: 
  Country: None (occurrence: None)
  Receive Date: 20110505
  Receipt Date: 20110502
  Transmission Date: 20111010
  Serious: No
  Sender: FDA-Public Use
  Company Number: US-PFIZER INC-2011093912

PATIENT
  Sex: Female

DRUGS (2)
  1. ADVIL LIQUI-GELS [Suspect]
     Indication: ANALGESIC THERAPY
     Dosage: ONE TABLET EVERY OTHER DAY
     Route: 048
     Dates: start: 20110401
  2. ASPIRIN [Suspect]
     Dosage: UNK
     Route: 048

REACTIONS (1)
  - TINNITUS [None]
